FAERS Safety Report 4951646-3 (Version None)
Quarter: 2006Q1

REPORT INFORMATION
  Report Type: 
  Country: None (occurrence: None)
  Receive Date: 20060322
  Receipt Date: 20060322
  Transmission Date: 20060701
  Serious: Yes (Other)
  Sender: FDA-Public Use
  Company Number: None

PATIENT
  Age: 17 Year
  Sex: Male
  Weight: 45.3597 kg

DRUGS (1)
  1. GABAPENTIN [Suspect]
     Indication: CONVULSION
     Dosage: 400 MG 3 TIMES DAILY PO
     Route: 048
     Dates: start: 20050201, end: 20050325

REACTIONS (4)
  - DRUG EFFECT DECREASED [None]
  - FALL [None]
  - MUSCULOSKELETAL STIFFNESS [None]
  - THERAPEUTIC RESPONSE UNEXPECTED WITH DRUG SUBSTITUTION [None]
